FAERS Safety Report 8541127-2 (Version None)
Quarter: 2012Q3

REPORT INFORMATION
  Report Type: 
  Country: None (occurrence: None)
  Receive Date: 20120726
  Receipt Date: 20110817
  Transmission Date: 20120928
  Serious: No
  Sender: FDA-Public Use
  Company Number: US-ASTRAZENECA-2011SE49355

PATIENT
  Age: 38 Year
  Sex: Male
  Weight: 79.4 kg

DRUGS (2)
  1. SEROQUEL [Suspect]
     Indication: BIPOLAR DISORDER
     Route: 048
     Dates: start: 20020101
  2. PROPRANOLOL [Concomitant]
     Indication: HYPERTENSION
     Route: 048
     Dates: start: 20010101

REACTIONS (8)
  - DYSARTHRIA [None]
  - GAIT DISTURBANCE [None]
  - AMNESIA [None]
  - HEART RATE DECREASED [None]
  - HYPOKINESIA [None]
  - ROAD TRAFFIC ACCIDENT [None]
  - HYPERTENSION [None]
  - DRUG DOSE OMISSION [None]
